FAERS Safety Report 10666015 (Version 2)
Quarter: 2014Q4

REPORT INFORMATION
  Report Type: Report from Study
  Country: AU (occurrence: AU)
  Receive Date: 20141219
  Receipt Date: 20141219
  Transmission Date: 20150529
  Serious: Yes (Hospitalization, Other)
  Sender: FDA-Public Use
  Company Number: PHHY2014AU137206

PATIENT
  Age: 61 Year
  Sex: Male

DRUGS (2)
  1. ACLASTA [Suspect]
     Active Substance: ZOLEDRONIC ACID
     Indication: PRODUCT USED FOR UNKNOWN INDICATION
     Dosage: 5 MG, UNK
     Route: 042
  2. ACLASTA [Suspect]
     Active Substance: ZOLEDRONIC ACID
     Dosage: 5 MG, UNK
     Route: 042

REACTIONS (4)
  - Wound infection [Recovered/Resolved]
  - Skin wound [Recovered/Resolved]
  - Fall [Unknown]
  - Impaired healing [Recovered/Resolved]

NARRATIVE: CASE EVENT DATE: 20140526
